FAERS Safety Report 5699610-3 (Version None)
Quarter: 2008Q2

REPORT INFORMATION
  Report Type: 
  Country: None (occurrence: None)
  Receive Date: 20080408
  Receipt Date: 20080408
  Transmission Date: 20081010
  Serious: No
  Sender: FDA-Public Use
  Company Number: None

PATIENT
  Age: 56 Year
  Sex: Female
  Weight: 43.9989 kg

DRUGS (1)
  1. LEVAQUIN [Suspect]
     Indication: BRONCHITIS
     Dosage: 750MG ONCE DAILY PO
     Route: 048
     Dates: start: 20080328, end: 20080404

REACTIONS (2)
  - ERYTHEMA [None]
  - TENDONITIS [None]
